FAERS Safety Report 7679078-8 (Version None)
Quarter: 2011Q3

REPORT INFORMATION
  Report Type: 
  Country: None (occurrence: None)
  Receive Date: 20110812
  Receipt Date: 20110803
  Transmission Date: 20111222
  Serious: Yes (Other)
  Sender: FDA-Public Use
  Company Number: US-AMGEN-USASP2011039336

PATIENT
  Age: 78 Year
  Sex: Male

DRUGS (2)
  1. SENSIPAR [Suspect]
     Indication: HYPERPARATHYROIDISM
     Dosage: 30 MG, Q12H
     Dates: start: 20110714
  2. SENSIPAR [Suspect]
     Dosage: 15 MG, Q12H

REACTIONS (2)
  - HYPERCALCAEMIA [None]
  - CONFUSIONAL STATE [None]
